FAERS Safety Report 7737018-7 (Version None)
Quarter: 2011Q3

REPORT INFORMATION
  Report Type: 
  Country: None (occurrence: None)
  Receive Date: 20110908
  Receipt Date: 20110826
  Transmission Date: 20111222
  Serious: Yes (Hospitalization, Other)
  Sender: FDA-Public Use
  Company Number: US-ELI_LILLY_AND_COMPANY-US201105001473

PATIENT
  Sex: Female
  Weight: 44 kg

DRUGS (21)
  1. FOLIC ACID [Concomitant]
     Dosage: 1600 MG, 2/W
     Route: 048
  2. MULTI-VITAMIN [Concomitant]
     Dosage: UNK, QD
  3. FLUCONAZOLE [Concomitant]
     Indication: PHARYNGEAL ABSCESS
     Dosage: 100 MG, QD
     Route: 048
  4. LOPRESSOR [Concomitant]
     Dosage: UNK UNK, QD
     Route: 048
  5. CALCIUM CARBONATE [Concomitant]
     Indication: SPINAL FRACTURE
     Dosage: 1600 MG, TID
  6. FORTEO [Suspect]
     Dosage: 20 UG, QD
     Route: 058
     Dates: start: 20110422
  7. AMITRIPTYLINE HCL [Concomitant]
     Dosage: 25 MG, EACH EVENING
     Route: 048
  8. LIPITOR [Concomitant]
     Dosage: 10 MG, QD
     Route: 048
  9. OPTIVE [Concomitant]
     Dosage: UNK, 2/W
     Route: 047
  10. VITAMIN D [Concomitant]
     Indication: SPINAL FRACTURE
     Dosage: UNK UNK, MONTHLY (1/M)
  11. FORTEO [Suspect]
     Indication: OSTEOPOROSIS
     Dosage: 20 UG, QD
     Route: 058
     Dates: start: 20110406, end: 20110418
  12. CENTRUM SILVER [Concomitant]
     Dosage: UNK, QD
     Route: 048
  13. CALTRATE + D [Concomitant]
     Dosage: 1200 MG, QD
     Route: 048
  14. AMOXICILLIN [Concomitant]
     Indication: COCCIDIOIDOMYCOSIS
     Dosage: 500 MG, EVERY 8 HRS
     Route: 048
  15. CELEBREX [Concomitant]
     Dosage: 200 MG, BID
     Route: 048
  16. METHOTREXATE SODIUM [Concomitant]
     Dosage: 10 MG, WEEKLY (1/W)
     Route: 048
  17. ASPIRIN [Concomitant]
     Dosage: 81 MG, QD
  18. NEXIUM [Concomitant]
     Dosage: 40 MG, QD
     Route: 048
  19. FLEXERIL [Concomitant]
     Dosage: 5 MG, PRN
  20. RETIN-A [Concomitant]
     Dosage: 0.05 %, PRN
     Route: 061
  21. SYNTHROID [Concomitant]
     Indication: THYROID DISORDER
     Dosage: 75 UG, QD
     Route: 048

REACTIONS (11)
  - SYNOVITIS [None]
  - HEAD INJURY [None]
  - ILL-DEFINED DISORDER [None]
  - DYSGEUSIA [None]
  - FALL [None]
  - DIZZINESS [None]
  - ANAEMIA [None]
  - BACK DISORDER [None]
  - COCCIDIOIDOMYCOSIS [None]
  - PAROSMIA [None]
  - SYNCOPE [None]
